FAERS Safety Report 4848756-8 (Version None)
Quarter: 2005Q4

REPORT INFORMATION
  Report Type: 
  Country: None (occurrence: None)
  Receive Date: 20051206
  Receipt Date: 20051121
  Transmission Date: 20060501
  Serious: Yes (Life-Threatening, Hospitalization)
  Sender: FDA-Public Use
  Company Number: S05-IRL-05523-01

PATIENT
  Age: 64 Year
  Sex: Female

DRUGS (7)
  1. CITALOPRAM HYDROBROMIDE [Suspect]
     Indication: DEPRESSION
     Dosage: 20 MG QD PO
     Route: 048
     Dates: end: 20050614
  2. DISTALGESIC   DISTA [Concomitant]
  3. ESOMEPRAZOLE [Concomitant]
  4. AULIN   BOEHRINGER MANNHEIM  (NIMESULIDE) [Concomitant]
  5. DELTACORTRIL (PREDNISOLONE) [Concomitant]
  6. ASPIRIN [Concomitant]
  7. BURAM [Concomitant]

REACTIONS (2)
  - EPILEPSY [None]
  - HYPONATRAEMIA [None]
